FAERS Safety Report 6038727-0 (Version None)
Quarter: 2009Q1

REPORT INFORMATION
  Report Type: 
  Country: None (occurrence: None)
  Receive Date: 20090115
  Receipt Date: 20081209
  Transmission Date: 20090719
  Serious: No
  Sender: FDA-Public Use
  Company Number: US-BAYER-200814820BCC

PATIENT
  Age: 49 Year
  Sex: Male
  Weight: 136 kg

DRUGS (4)
  1. ALEVE (CAPLET) [Suspect]
     Indication: DRUG USE FOR UNKNOWN INDICATION
     Dosage: AS USED: 220 MG  UNIT DOSE: 220 MG
     Dates: start: 20081209
  2. CRESTOR [Concomitant]
  3. METFORMIN [Concomitant]
  4. GLYBURIDE [Concomitant]

REACTIONS (4)
  - CHILLS [None]
  - PAIN [None]
  - PYREXIA [None]
  - TREMOR [None]
